FAERS Safety Report 5768760-5 (Version None)
Quarter: 2008Q2

REPORT INFORMATION
  Report Type: 
  Country: None (occurrence: None)
  Receive Date: 20080610
  Receipt Date: 20080519
  Transmission Date: 20081010
  Serious: Yes (Death, Life-Threatening, Other)
  Sender: FDA-Public Use
  Company Number: CH200805003782

PATIENT
  Age: 41 Year
  Sex: Female

DRUGS (11)
  1. CYMBALTA [Suspect]
     Dosage: 90 MG; 120 MG; 60 MG, DAILY (1/D), ORAL
     Route: 048
     Dates: start: 20080130, end: 20080228
  2. ZYPREXA [Suspect]
     Dosage: 15 MG DAILY (1/D), ORAL
     Route: 048
     Dates: start: 20080108, end: 20080228
  3. REMERON [Concomitant]
  4. WELLBATRIN (BUPROPION HYDROCHLORIDE) [Concomitant]
  5. LORAZEPAM [Concomitant]
  6. LIORESAL [Concomitant]
  7. IBUPROFEN [Concomitant]
  8. NEURONTIN [Concomitant]
  9. PANTOPRAZOLE SODIUM [Concomitant]
  10. OXYCONTIN [Concomitant]
  11. OXYCODONE HCL [Concomitant]

REACTIONS (6)
  - AGITATION [None]
  - APATHY [None]
  - ASPHYXIA [None]
  - COMPLETED SUICIDE [None]
  - PAIN [None]
  - SUICIDAL IDEATION [None]
